FAERS Safety Report 6895590-3 (Version None)
Quarter: 2010Q3

REPORT INFORMATION
  Report Type: 
  Country: None (occurrence: None)
  Receive Date: 20100802
  Receipt Date: 20100727
  Transmission Date: 20110219
  Serious: Yes (Life-Threatening)
  Sender: FDA-Public Use
  Company Number: PHHY2010US49309

PATIENT
  Sex: Female

DRUGS (1)
  1. TRILEPTAL [Suspect]
     Dosage: THREE TIMES A DAY
     Dates: start: 20100501, end: 20100624

REACTIONS (5)
  - ANAEMIA [None]
  - DISTURBANCE IN ATTENTION [None]
  - DIZZINESS [None]
  - FEELING ABNORMAL [None]
  - OEDEMA PERIPHERAL [None]
